FAERS Safety Report 7320110-9 (Version None)
Quarter: 2011Q1

REPORT INFORMATION
  Report Type: 
  Country: None (occurrence: None)
  Receive Date: 20110214
  Receipt Date: 20110211
  Transmission Date: 20110831
  Serious: Yes (Hospitalization, Other)
  Sender: FDA-Public Use
  Company Number: 2009SP020359

PATIENT
  Age: 43 Year
  Sex: Female
  Weight: 78.4723 kg

DRUGS (11)
  1. NUVARING [Suspect]
     Indication: PRODUCT USED FOR UNKNOWN INDICATION
     Dates: start: 20050201, end: 20060401
  2. TYLENOL [Concomitant]
  3. PREVACID [Concomitant]
  4. CELEBREX [Concomitant]
  5. TYLENOL [Concomitant]
  6. MOTRIN [Concomitant]
  7. PHENTERMINE HCL [Concomitant]
  8. MOTRIN [Concomitant]
  9. PRILOSEC [Concomitant]
  10. ULTRAM [Concomitant]
  11. MOBIC [Concomitant]

REACTIONS (15)
  - PHLEBITIS [None]
  - IATROGENIC INJURY [None]
  - VENOUS THROMBOSIS LIMB [None]
  - LYMPHADENOPATHY [None]
  - SEBORRHOEIC KERATOSIS [None]
  - LUNG DISORDER [None]
  - CARBOHYDRATE ANTIGEN 19-9 INCREASED [None]
  - MELANOCYTIC NAEVUS [None]
  - SUPERIOR SAGITTAL SINUS THROMBOSIS [None]
  - PULMONARY EMBOLISM [None]
  - HYPERCOAGULATION [None]
  - EPISCLERITIS [None]
  - SQUAMOUS CELL CARCINOMA OF SKIN [None]
  - PAPILLOEDEMA [None]
  - INTRACRANIAL VENOUS SINUS THROMBOSIS [None]
